FAERS Safety Report 18406994 (Version 2)
Quarter: 2022Q2

REPORT INFORMATION
  Report Type: Spontaneous
  Country: BR (occurrence: BR)
  Receive Date: 20201021
  Receipt Date: 20220527
  Transmission Date: 20220721
  Serious: Yes (Other)
  Sender: FDA-Public Use
  Company Number: BR-PFIZER INC-2019095708

PATIENT
  Age: 39 Year
  Sex: Female

DRUGS (1)
  1. ENBREL [Suspect]
     Active Substance: ETANERCEPT
     Indication: Product used for unknown indication
     Dosage: UNK
     Route: 065
     Dates: start: 201901, end: 202006

REACTIONS (17)
  - Ankylosing spondylitis [Unknown]
  - Back pain [Unknown]
  - Arthralgia [Unknown]
  - Neck pain [Unknown]
  - Headache [Unknown]
  - Mobility decreased [Unknown]
  - Muscular weakness [Unknown]
  - Decreased immune responsiveness [Unknown]
  - Onychoclasis [Unknown]
  - Skin swelling [Unknown]
  - Skin papilloma [Unknown]
  - General physical health deterioration [Unknown]
  - Fall [Unknown]
  - Rash [Unknown]
  - Pain [Unknown]
  - Spinal column injury [Unknown]
  - Joint swelling [Unknown]
